FAERS Safety Report 8407749 (Version 3)
Quarter: 2014Q2

REPORT INFORMATION
  Report Type: Report from Study
  Country: CA (occurrence: CA)
  Receive Date: 20120215
  Receipt Date: 20140402
  Transmission Date: 20141212
  Serious: Yes (Other)
  Sender: FDA-Public Use
  Company Number: PHHY2012CA009968

PATIENT
  Age: 70 Year
  Sex: Female

DRUGS (8)
  1. ACLASTA [Suspect]
     Indication: OSTEOPOROSIS
     Dosage: UNK UKN, UNK
     Route: 042
     Dates: start: 2009
  2. ACLASTA [Suspect]
     Dosage: UNK UKN, UNK
     Route: 042
     Dates: start: 20100318
  3. ACLASTA [Suspect]
     Dosage: UNK UKN, UNK
     Route: 042
     Dates: start: 20110317
  4. ACLASTA [Suspect]
     Dosage: UNK UKN, UNK
     Route: 042
     Dates: start: 20120320
  5. ACLASTA [Suspect]
     Dosage: UNK UKN, UNK
     Route: 042
     Dates: start: 20130327
  6. CARBOCAL D [Concomitant]
     Dosage: UNK UKN, BID
     Dates: start: 2008
  7. LOPERAMIDE [Concomitant]
     Dosage: 2 MG, PRN
  8. PARIET [Concomitant]
     Dosage: 20 MG, BID

REACTIONS (2)
  - Diverticulitis [Unknown]
  - Gastroenteritis [Unknown]
